FAERS Safety Report 5393773-5 (Version None)
Quarter: 2007Q3

REPORT INFORMATION
  Report Type: 
  Country: None (occurrence: None)
  Receive Date: 20070723
  Receipt Date: 20070712
  Transmission Date: 20080115
  Serious: Yes (Hospitalization)
  Sender: FDA-Public Use
  Company Number: NL-JNJFOC-20070703119

PATIENT
  Sex: Male

DRUGS (3)
  1. CONCERTA [Suspect]
     Dosage: TOOK 18MG ON WEEKEND AND HOLIDAYS
     Route: 048
  2. CONCERTA [Suspect]
     Route: 048
  3. CONCERTA [Suspect]
     Indication: ATTENTION DEFICIT/HYPERACTIVITY DISORDER
     Route: 048

REACTIONS (1)
  - BLOOD PRESSURE INCREASED [None]
